FAERS Safety Report 11467151 (Version 6)
Quarter: 2016Q1

REPORT INFORMATION
  Report Type: Report from Study
  Country: CA (occurrence: CA)
  Receive Date: 20150908
  Receipt Date: 20160314
  Transmission Date: 20160525
  Serious: Yes (Other)
  Sender: FDA-Public Use
  Company Number: CA-ROCHE-1630336

PATIENT
  Age: 59 Year
  Sex: Male

DRUGS (3)
  1. ACTEMRA [Suspect]
     Active Substance: TOCILIZUMAB
     Indication: RHEUMATOID ARTHRITIS
     Route: 058
     Dates: start: 20150902, end: 2016
  2. CORTISONE [Concomitant]
     Active Substance: CORTISONE\HYDROCORTISONE
     Route: 065
  3. CORTISONE [Concomitant]
     Active Substance: CORTISONE\HYDROCORTISONE
     Route: 065

REACTIONS (28)
  - Mucosal inflammation [Unknown]
  - Inflammation [Not Recovered/Not Resolved]
  - Pyrexia [Not Recovered/Not Resolved]
  - Arthralgia [Not Recovered/Not Resolved]
  - Neck pain [Not Recovered/Not Resolved]
  - Dizziness [Not Recovered/Not Resolved]
  - Arthritis [Not Recovered/Not Resolved]
  - Synovitis [Unknown]
  - Injection site reaction [Recovered/Resolved]
  - Feeling drunk [Not Recovered/Not Resolved]
  - Inflammation [Unknown]
  - Swelling face [Not Recovered/Not Resolved]
  - Hot flush [Unknown]
  - Headache [Unknown]
  - Rhinorrhoea [Not Recovered/Not Resolved]
  - Peripheral swelling [Not Recovered/Not Resolved]
  - Drug ineffective [Unknown]
  - Speech disorder [Unknown]
  - Electrocardiogram change [Unknown]
  - Respiratory tract congestion [Not Recovered/Not Resolved]
  - Musculoskeletal stiffness [Not Recovered/Not Resolved]
  - Headache [Not Recovered/Not Resolved]
  - Asthenia [Unknown]
  - Swelling face [Unknown]
  - Pain in jaw [Not Recovered/Not Resolved]
  - Bronchitis [Not Recovered/Not Resolved]
  - Myalgia [Unknown]
  - Dyspnoea [Unknown]

NARRATIVE: CASE EVENT DATE: 20150902
